FAERS Safety Report 25518758 (Version 2)
Quarter: 2025Q3

REPORT INFORMATION
  Report Type: Spontaneous
  Country: EU (occurrence: EU)
  Receive Date: 20250704
  Receipt Date: 20250711
  Transmission Date: 20251021
  Serious: Yes (Life-Threatening, Hospitalization)
  Sender: EMD SERONO INC
  Company Number: None

PATIENT
  Age: 78 Year
  Sex: Male
  Weight: 77 kg

DRUGS (13)
  1. METFORMIN [Suspect]
     Active Substance: METFORMIN HYDROCHLORIDE
     Indication: Suicide attempt
     Dates: start: 20250521, end: 20250521
  2. METFORMIN [Concomitant]
     Active Substance: METFORMIN HYDROCHLORIDE
     Indication: Type 2 diabetes mellitus
     Dosage: METFORMIN 850 MG TABLET
     Dates: start: 2017, end: 20250520
  3. OMEPRAZOLE [Concomitant]
     Active Substance: OMEPRAZOLE
     Indication: Product used for unknown indication
     Dosage: OMEPRAZOLE 20 MG 1-0-0
     Dates: start: 2015
  4. ACETAMINOPHEN [Concomitant]
     Active Substance: ACETAMINOPHEN
     Indication: Product used for unknown indication
     Dosage: PARACETAMOL 1000 (UNIT UNSPECIFIED) 40 MG 1 EVERY 24 HOURS
     Dates: start: 2016
  5. ENALAPRIL [Concomitant]
     Active Substance: ENALAPRIL
     Indication: Product used for unknown indication
     Dosage: ENALAPRIL 20 MG 1 EVERY 12 HOURS 2021
     Dates: start: 2021
  6. CARBIDOPA\LEVODOPA [Concomitant]
     Active Substance: CARBIDOPA\LEVODOPA
     Indication: Product used for unknown indication
     Dates: start: 2021
  7. RIVOTRIL [Concomitant]
     Active Substance: CLONAZEPAM
     Indication: Product used for unknown indication
     Dates: start: 2023
  8. CITALOPRAM [Concomitant]
     Active Substance: CITALOPRAM
     Indication: Product used for unknown indication
     Dosage: CITALOPRAM 10 MG 1-0-0 2023
     Dates: start: 2023
  9. MIRABEGRON [Concomitant]
     Active Substance: MIRABEGRON
     Indication: Product used for unknown indication
     Dosage: BETMIGA 50 MG 1 EVERY 24 HOURS
     Dates: start: 202404
  10. ACTOL [NIFLUMIC ACID] [Concomitant]
     Indication: Product used for unknown indication
     Dates: start: 202503
  11. MAGNOGENE [MAGNESIUM BROMIDE;MAGNESIUM CHLORIDE;MAGNESIUM FLUORIDE;MAG [Concomitant]
     Indication: Product used for unknown indication
     Dosage: MAGNOGENE 2 EVERY 12 HOURS
     Dates: start: 202503
  12. ONGENTYS [Concomitant]
     Active Substance: OPICAPONE
     Indication: Product used for unknown indication
     Dosage: ONGENTYS 50 MG 1 AT BREAKFAST
     Dates: start: 2022
  13. CYANOCOBALAMIN [Concomitant]
     Active Substance: CYANOCOBALAMIN
     Indication: Product used for unknown indication
     Dosage: 1000 GAMMAS 1 EVERY 14 DAYS
     Dates: start: 202404

REACTIONS (3)
  - Acute kidney injury [Recovered/Resolved]
  - Lactic acidosis [Recovered/Resolved]
  - Intentional overdose [Recovered/Resolved]

NARRATIVE: CASE EVENT DATE: 20250521
